FAERS Safety Report 17530350 (Version 1)
Quarter: 2020Q1

REPORT INFORMATION
  Report Type: Spontaneous
  Country: GB (occurrence: GB)
  Receive Date: 20200312
  Receipt Date: 20200312
  Transmission Date: 20200409
  Serious: Yes (Hospitalization, Other)
  Sender: FDA-Public Use
  Company Number: GB-TEVA-2020-GB-1198119

PATIENT
  Age: 78 Year
  Sex: Male

DRUGS (8)
  1. HYPURIN PORCINE ISOPHANE [Concomitant]
     Dosage: 2 DF
  2. CALCICHEW D3 [Concomitant]
     Active Substance: CALCIUM\CHOLECALCIFEROL
     Dosage: 2 DF
  3. DIGOXIN. [Concomitant]
     Active Substance: DIGOXIN
     Dosage: 125 MICROGRAM DAILY;
  4. ENALAPRIL MALEATE. [Suspect]
     Active Substance: ENALAPRIL MALEATE
     Dosage: 40 MG
     Route: 048
     Dates: start: 20190717, end: 20190807
  5. FOSTAIR [Concomitant]
     Active Substance: BECLOMETHASONE\FORMOTEROL
     Dosage: 100/6, 4 DF
  6. TAMSULOSIN [Concomitant]
     Active Substance: TAMSULOSIN
     Dosage: 400 MCG
  7. BISOPROLOL [Concomitant]
     Active Substance: BISOPROLOL
     Dosage: 5 MG
  8. HYPURIN PORCINE NEUTRAL [Concomitant]
     Dosage: 2 DF

REACTIONS (2)
  - Urosepsis [Unknown]
  - Acute kidney injury [Recovered/Resolved]

NARRATIVE: CASE EVENT DATE: 20190717
